FAERS Safety Report 8488332-1 (Version None)
Quarter: 2012Q3

REPORT INFORMATION
  Report Type: 
  Country: None (occurrence: None)
  Receive Date: 20120705
  Receipt Date: 20120626
  Transmission Date: 20120928
  Serious: Yes (Hospitalization, Other)
  Sender: FDA-Public Use
  Company Number: US-JNJFOC-20120516838

PATIENT
  Sex: Male
  Weight: 90.1 kg

DRUGS (27)
  1. MESALAMINE [Concomitant]
  2. TORADOL [Concomitant]
  3. HYDROMORPHONE HCL [Concomitant]
  4. ZOSYN [Concomitant]
  5. DEXMEDETOMODINE HYDROCHLORIDE [Concomitant]
  6. LISINOPRIL [Concomitant]
  7. FOLIC ACID [Concomitant]
  8. ZOFRAN [Concomitant]
  9. OXYCODONE HCL [Concomitant]
  10. ALL OTHER THERAPEUTICS [Concomitant]
  11. BENADRYL [Concomitant]
  12. MIDAZOLAM [Concomitant]
  13. ACETAMINOPHEN [Concomitant]
  14. NEOSTIGMINE [Concomitant]
  15. FENTANYL [Concomitant]
  16. LACTATED RINGER'S [Concomitant]
  17. SODIUM CHLORIDE [Concomitant]
  18. SEVOFLURANE [Concomitant]
  19. REMICADE [Suspect]
     Indication: CROHN'S DISEASE
     Route: 042
     Dates: start: 20110401
  20. PREDNISONE [Concomitant]
  21. IRON [Concomitant]
  22. PEPCID [Concomitant]
  23. LIDOCAINE [Concomitant]
  24. MORPHINE [Concomitant]
  25. ROCURONIUM BROMIDE [Concomitant]
  26. GLYCOPYRROLATE [Concomitant]
  27. PROPOFOL [Concomitant]

REACTIONS (2)
  - CROHN'S DISEASE [None]
  - POSTOPERATIVE ILEUS [None]
